FAERS Safety Report 6747727-4 (Version None)
Quarter: 2010Q2

REPORT INFORMATION
  Report Type: 
  Country: None (occurrence: None)
  Receive Date: 20100528
  Receipt Date: 20100521
  Transmission Date: 20101027
  Serious: Yes (Other)
  Sender: FDA-Public Use
  Company Number: CA-ABBOTT-10P-028-0644913-00

PATIENT
  Sex: Male

DRUGS (24)
  1. HUMIRA [Suspect]
     Indication: CROHN'S DISEASE
     Route: 058
     Dates: start: 20091118
  2. TESTOSTERONE CYPIONATE [Concomitant]
     Indication: ASTHENIA
     Dates: start: 20080101
  3. VITAMIN B-12 [Concomitant]
     Indication: VITAMIN SUPPLEMENTATION
     Dates: start: 19800101
  4. TERAZOSIN HCL [Concomitant]
     Indication: URINARY TRACT DISORDER
     Dosage: 2-2MG TABLETS DAILY
     Route: 048
     Dates: start: 20050101
  5. HALCION [Concomitant]
     Indication: INSOMNIA
     Dosage: 1/2-1 TAB DAILY
     Route: 048
     Dates: start: 19900101
  6. RABEPRAZOLE SODIUM [Concomitant]
     Indication: ULCER
     Dosage: 2-20MG TABLETS DAILY
     Route: 048
     Dates: start: 20080101
  7. CODEINE SULFATE [Concomitant]
     Indication: GASTROINTESTINAL DISORDER
     Dosage: 30MG AS NEEDED
     Route: 048
     Dates: start: 19900101
  8. OXYCODONE [Concomitant]
     Indication: PAIN
     Dosage: 5/325MG AS NEEDED
     Route: 048
     Dates: start: 19800101
  9. CIALIS [Concomitant]
     Indication: DRUG USE FOR UNKNOWN INDICATION
     Dosage: 10MG AS NEEDED
     Route: 048
     Dates: start: 20090101
  10. INDOMETHACIN [Concomitant]
     Indication: DRUG USE FOR UNKNOWN INDICATION
     Dosage: 100MG SUPPOSITORY AS NEEDED
     Route: 048
     Dates: start: 20090101
  11. SYMBICORT [Concomitant]
     Indication: RESPIRATORY DISORDER
     Route: 055
     Dates: start: 20091001
  12. K-CITRA [Concomitant]
     Indication: DRUG USE FOR UNKNOWN INDICATION
     Dosage: 10MG DAILY
     Route: 048
     Dates: start: 20091201
  13. SALBUTANT [Concomitant]
     Indication: RESPIRATORY DISORDER
     Route: 055
     Dates: start: 20091201
  14. CIPRALEX [Concomitant]
     Indication: INSOMNIA
     Dosage: 10MG 1/2 TAB DAILY
     Route: 048
     Dates: start: 20091201
  15. COLESTID [Concomitant]
     Indication: GASTROOESOPHAGEAL REFLUX DISEASE
     Dosage: 2 TABS DAILY
     Route: 048
     Dates: start: 20100101
  16. TYLENOL (CAPLET) [Concomitant]
     Indication: PAIN
     Dosage: 2 TABS AS NEEDED
     Route: 048
  17. MULTIVITAMIN C [Concomitant]
     Indication: VITAMIN SUPPLEMENTATION
     Dosage: DAILY
     Route: 048
  18. MALOX [Concomitant]
     Indication: DYSPEPSIA
     Dosage: AS NEEDED
     Route: 048
  19. GAVISCON [Concomitant]
     Indication: DYSPEPSIA
     Dosage: AS NEEDED
     Route: 048
  20. GRAVOL TAB [Concomitant]
     Indication: NAUSEA
     Dosage: AS NEEDED
     Route: 048
  21. BENADRYL WITH OXYCODONE [Concomitant]
     Indication: DRUG USE FOR UNKNOWN INDICATION
     Dosage: AS NEEDED
     Route: 048
  22. COLD AND SINUAS MEDICATION [Concomitant]
     Indication: DRUG USE FOR UNKNOWN INDICATION
     Dosage: AS NEEDED
     Route: 048
  23. MULTIVITAMIN B [Concomitant]
     Indication: VITAMIN SUPPLEMENTATION
     Dosage: DAILY
     Route: 048
  24. MULTIVITAMIN E [Concomitant]
     Indication: MEDICAL DIET
     Dosage: DAILY
     Route: 048

REACTIONS (2)
  - NEPHROLITHIASIS [None]
  - URINARY RETENTION POSTOPERATIVE [None]
